FAERS Safety Report 24608755 (Version 1)
Quarter: 2024Q4

REPORT INFORMATION
  Report Type: Spontaneous
  Country: DE (occurrence: DE)
  Receive Date: 20241112
  Receipt Date: 20241112
  Transmission Date: 20250115
  Serious: Yes (Other)
  Sender: NOVARTIS
  Company Number: None

PATIENT
  Age: 34 Year
  Sex: Female

DRUGS (4)
  1. EXTAVIA [Suspect]
     Active Substance: INTERFERON BETA-1B
     Indication: Multiple sclerosis
     Dosage: 1 DOSAGE FORM, ABOUT 2 YEARS, ONGOING, EVERY OTHER EVENING
     Route: 065
  2. OPIPRAMOL [Suspect]
     Active Substance: OPIPRAMOL
     Indication: Tension
     Dosage: 50MG, QD, TAKE EVERY EVENING
     Route: 065
     Dates: start: 20240819
  3. OPIPRAMOL [Suspect]
     Active Substance: OPIPRAMOL
     Indication: Anxiety
  4. OPIPRAMOL [Suspect]
     Active Substance: OPIPRAMOL
     Indication: Restlessness

REACTIONS (3)
  - Angle closure glaucoma [Recovering/Resolving]
  - Ocular discomfort [Recovering/Resolving]
  - Eye pain [Recovered/Resolved]

NARRATIVE: CASE EVENT DATE: 20240820
